FAERS Safety Report 4481074-9 (Version None)
Quarter: 2004Q4

REPORT INFORMATION
  Report Type: 
  Country: None (occurrence: None)
  Receive Date: 20041020
  Receipt Date: 20041020
  Transmission Date: 20050328
  Serious: Yes (Life-Threatening, Hospitalization)
  Sender: FDA-Public Use
  Company Number: None

PATIENT
  Age: 30 Year
  Sex: Female
  Weight: 84.369 kg

DRUGS (2)
  1. BACTRIM DS [Suspect]
     Indication: TOXIC EPIDERMAL NECROLYSIS
     Dosage: 1 TAB PO BID
     Route: 048
     Dates: start: 19970408, end: 19970416
  2. MULTI-VITAMIN [Concomitant]

REACTIONS (3)
  - BLISTER [None]
  - BODY TEMPERATURE INCREASED [None]
  - RASH GENERALISED [None]
